FAERS Safety Report 8614122-2 (Version None)
Quarter: 2012Q3

REPORT INFORMATION
  Report Type: 
  Country: None (occurrence: None)
  Receive Date: 20120823
  Receipt Date: 20120808
  Transmission Date: 20120928
  Serious: Yes (Hospitalization)
  Sender: FDA-Public Use
  Company Number: DE-UCBSA-062044

PATIENT
  Sex: Male
  Weight: 83 kg

DRUGS (4)
  1. KEPPRA [Concomitant]
     Dates: start: 20120101
  2. VIMPAT [Suspect]
     Route: 048
     Dates: start: 20120501, end: 20120701
  3. VIMPAT [Suspect]
     Dosage: START-UP DOSE
     Route: 048
     Dates: start: 20120101, end: 20120101
  4. VIMPAT [Suspect]
     Route: 048
     Dates: start: 20120101, end: 20120101

REACTIONS (11)
  - APATHY [None]
  - HEADACHE [None]
  - DEPRESSION [None]
  - VISION BLURRED [None]
  - ASTHENIA [None]
  - GAIT DISTURBANCE [None]
  - FATIGUE [None]
  - SOMNOLENCE [None]
  - DIZZINESS [None]
  - MOTOR DYSFUNCTION [None]
  - DISTURBANCE IN ATTENTION [None]
